FAERS Safety Report 10160029 (Version 1)
Quarter: 2014Q2

REPORT INFORMATION
  Report Type: Spontaneous
  Country: FR (occurrence: FR)
  Receive Date: 20140508
  Receipt Date: 20140508
  Transmission Date: 20141212
  Serious: Yes (Hospitalization)
  Sender: FDA-Public Use
  Company Number: FR-SA-2014SA055341

PATIENT
  Age: 86 Year
  Sex: Male

DRUGS (3)
  1. LASILIX [Suspect]
     Indication: PRODUCT USED FOR UNKNOWN INDICATION
     Route: 048
     Dates: end: 20140324
  2. KENZEN [Suspect]
     Indication: PRODUCT USED FOR UNKNOWN INDICATION
     Dosage: DOSE:1 UNIT(S)
     Route: 048
     Dates: start: 201403, end: 20140324
  3. INSPRA [Suspect]
     Indication: PRODUCT USED FOR UNKNOWN INDICATION
     Route: 048
     Dates: start: 201403, end: 20140324

REACTIONS (3)
  - Dehydration [Recovered/Resolved]
  - Renal failure [Recovered/Resolved]
  - Hyperkalaemia [Recovered/Resolved]
